FAERS Safety Report 6647148-9 (Version None)
Quarter: 2010Q1

REPORT INFORMATION
  Report Type: 
  Country: None (occurrence: None)
  Receive Date: 20100323
  Receipt Date: 20100313
  Transmission Date: 20100710
  Serious: Yes (Hospitalization)
  Sender: FDA-Public Use
  Company Number: PHHY2010MX15607

PATIENT
  Age: 67 Year
  Sex: Female

DRUGS (1)
  1. EXFORGE [Suspect]
     Indication: HYPERTENSION
     Dosage: 1 TABLET (160/10 MG) PER DAY
     Route: 048

REACTIONS (3)
  - OEDEMA PERIPHERAL [None]
  - RASH [None]
  - UTERINE OPERATION [None]
